FAERS Safety Report 24596963 (Version 1)
Quarter: 2024Q4

REPORT INFORMATION
  Report Type: Spontaneous
  Country: US (occurrence: US)
  Receive Date: 20241110
  Receipt Date: 20241110
  Transmission Date: 20250114
  Serious: No
  Sender: SANOFI AVENTIS
  Company Number: US-SANOFI-02265096

PATIENT
  Age: 63 Year
  Sex: Female

DRUGS (3)
  1. DUPIXENT [Suspect]
     Active Substance: DUPILUMAB
     Indication: Neurodermatitis
     Dosage: 300 MG
     Route: 058
  2. METHOTREXATE [Concomitant]
     Active Substance: METHOTREXATE
  3. KESIMPTA [Concomitant]
     Active Substance: OFATUMUMAB

REACTIONS (2)
  - Accidental exposure to product [Unknown]
  - Exposure via skin contact [Unknown]

NARRATIVE: CASE EVENT DATE: 20241015
